FAERS Safety Report 9499144 (Version 3)
Quarter: 2013Q4

REPORT INFORMATION
  Report Type: Spontaneous
  Country: JP (occurrence: JP)
  Receive Date: 20130905
  Receipt Date: 20131231
  Transmission Date: 20140711
  Serious: Yes (Other)
  Sender: FDA-Public Use
  Company Number: JP-AMGEN-JPNSP2013061524

PATIENT
  Age: 70 Year
  Sex: Female
  Weight: 56.6 kg

DRUGS (5)
  1. ENBREL [Suspect]
     Indication: RHEUMATOID ARTHRITIS
     Dosage: UNK
     Route: 058
     Dates: start: 20111212, end: 20130826
  2. METHOTREXATE SODIUM [Concomitant]
     Dosage: 4 MG, WEEKLY (2 MG IN THE MORNING AND 2 MG IN THE EVENING ON SUNDAYS)
     Route: 048
     Dates: start: 201102, end: 20130826
  3. FOLIAMIN [Concomitant]
     Dosage: 5 MG, WEEKLY (5 MG ONCE IN THE MORNING ON MONDAYS)
     Route: 048
  4. DIOVAN [Concomitant]
     Dosage: 80 MG, 2X/DAY, IN THE MORNING AND IN THE EVENING
     Route: 048
  5. MYSLEE [Concomitant]
     Dosage: 10 MG, 1X/DAY, AT BEDTIME
     Route: 048

REACTIONS (4)
  - Basedow^s disease [Recovering/Resolving]
  - Muscle spasms [Recovered/Resolved]
  - Thyroid adenoma [Not Recovered/Not Resolved]
  - Parathyroid gland enlargement [Not Recovered/Not Resolved]
